FAERS Safety Report 7196978-6 (Version None)
Quarter: 2010Q4

REPORT INFORMATION
  Report Type: 
  Country: None (occurrence: None)
  Receive Date: 20101224
  Receipt Date: 20101223
  Transmission Date: 20110411
  Serious: Yes (Other)
  Sender: FDA-Public Use
  Company Number: US-RB-017291-10

PATIENT
  Age: 76 Year
  Sex: Female

DRUGS (1)
  1. MUCINEX [Suspect]
     Dosage: PATIENT TOOK ONE PILL ON 22-DEC-2010
     Route: 048

REACTIONS (1)
  - EPISTAXIS [None]
